FAERS Safety Report 8098137-1 (Version None)
Quarter: 2012Q1

REPORT INFORMATION
  Report Type: 
  Country: None (occurrence: None)
  Receive Date: 20120128
  Receipt Date: 20110817
  Transmission Date: 20120608
  Serious: No
  Sender: FDA-Public Use
  Company Number: US-ABBOTT-11P-163-0847475-00

PATIENT
  Age: 80 Year
  Sex: Female

DRUGS (10)
  1. HUMIRA [Suspect]
     Indication: CROHN'S DISEASE
     Dates: start: 20101001
  2. CALCIUM [Concomitant]
     Indication: PROPHYLAXIS
  3. MAGNESIUM [Concomitant]
     Indication: PROPHYLAXIS
  4. FISH OIL [Concomitant]
     Indication: PROPHYLAXIS
  5. SINEMET [Concomitant]
     Indication: PARKINSON'S DISEASE
     Dosage: 50/200 MG: 4 X DAY
  6. ACIDAPHOLOUS [Concomitant]
     Indication: PROPHYLAXIS
  7. MIRAPEX [Concomitant]
     Indication: PARKINSON'S DISEASE
  8. ACACOL [Concomitant]
     Indication: CROHN'S DISEASE
  9. SYNTHROID [Concomitant]
     Indication: HYPOTHYROIDISM
  10. MIDANE [Concomitant]
     Indication: HYPOTENSION

REACTIONS (3)
  - INJECTION SITE HAEMORRHAGE [None]
  - INCORRECT ROUTE OF DRUG ADMINISTRATION [None]
  - WRONG TECHNIQUE IN DRUG USAGE PROCESS [None]
